FAERS Safety Report 5893510-1 (Version None)
Quarter: 2008Q3

REPORT INFORMATION
  Report Type: 
  Country: None (occurrence: None)
  Receive Date: 20080923
  Receipt Date: 20080919
  Transmission Date: 20090109
  Serious: Yes (Death)
  Sender: FDA-Public Use
  Company Number: TW-ASTRAZENECA-2008AP07270

PATIENT
  Age: 62 Year
  Sex: Male

DRUGS (1)
  1. CRESTOR [Suspect]
     Indication: DYSLIPIDAEMIA
     Dosage: HALF A 10MG TABLET TAKEN DAILY
     Route: 048
     Dates: start: 20080804, end: 20080822

REACTIONS (1)
  - RHABDOMYOLYSIS [None]
